FAERS Safety Report 22792329 (Version 5)
Quarter: 2024Q1

REPORT INFORMATION
  Report Type: Spontaneous
  Country: US (occurrence: US)
  Receive Date: 20230807
  Receipt Date: 20240229
  Transmission Date: 20240410
  Serious: No
  Sender: FDA-Public Use
  Company Number: US-BRISTOL-MYERS SQUIBB COMPANY-2023-110275

PATIENT
  Age: 73 Year
  Sex: Male

DRUGS (3)
  1. POMALYST [Suspect]
     Active Substance: POMALIDOMIDE
     Indication: Plasma cell myeloma
     Dosage: FREQUENCY-21 DAY ON 7 DAYS OFF
     Route: 048
  2. POMALYST [Suspect]
     Active Substance: POMALIDOMIDE
     Dosage: FREQUENCY-21 DAY ON 7 DAYS OFF
     Route: 048
     Dates: start: 20230728
  3. POMALYST [Suspect]
     Active Substance: POMALIDOMIDE
     Dosage: QD DAYS 1-21 EVERY 28 DAYS
     Route: 048

REACTIONS (2)
  - Erythema [Unknown]
  - White blood cell count decreased [Unknown]
